FAERS Safety Report 10627405 (Version 2)
Quarter: 2015Q1

REPORT INFORMATION
  Report Type: Report from Study
  Country: US (occurrence: US)
  Receive Date: 20141205
  Receipt Date: 20150109
  Transmission Date: 20150720
  Serious: Yes (Hospitalization)
  Sender: FDA-Public Use
  Company Number: US-MYLANLABS-2014M1011833

PATIENT

DRUGS (10)
  1. AMIODARONE [Suspect]
     Active Substance: AMIODARONE
  2. ELIQUIS [Suspect]
     Active Substance: APIXABAN
  3. NITROSTAT [Concomitant]
     Active Substance: NITROGLYCERIN
  4. ABIRATERONE ACETATE [Suspect]
     Active Substance: ABIRATERONE ACETATE
     Dosage: 15000 MG, UNK
     Dates: end: 20141007
  5. HYDRALAZINE [Suspect]
     Active Substance: HYDRALAZINE HYDROCHLORIDE
     Dosage: UNK
  6. ENZALUTAMIDE [Suspect]
     Active Substance: ENZALUTAMIDE
     Indication: PROSTATE CANCER
     Dosage: 160 MG, QD
     Route: 048
     Dates: start: 20140826
  7. PREDNISONE. [Suspect]
     Active Substance: PREDNISONE
     Dosage: 150 MG, UNK
     Dates: end: 20141007
  8. METOPROLOL [Suspect]
     Active Substance: METOPROLOL
  9. AMLODIPINE [Suspect]
     Active Substance: AMLODIPINE BESYLATE
  10. COZAAR [Suspect]
     Active Substance: LOSARTAN POTASSIUM

REACTIONS (1)
  - Acute coronary syndrome [Recovered/Resolved]

NARRATIVE: CASE EVENT DATE: 20141008
